FAERS Safety Report 14688607 (Version 2)
Quarter: 2018Q2

REPORT INFORMATION
  Report Type: Spontaneous
  Country: FR (occurrence: FR)
  Receive Date: 20180328
  Receipt Date: 20180403
  Transmission Date: 20180711
  Serious: No
  Sender: FDA-Public Use
  Company Number: FR-ABBVIE-18S-056-2304552-00

PATIENT
  Sex: Male

DRUGS (3)
  1. TAMIFLU [Concomitant]
     Active Substance: OSELTAMIVIR PHOSPHATE
     Indication: PRODUCT USED FOR UNKNOWN INDICATION
  2. CEFOTAXIME [Concomitant]
     Active Substance: CEFOTAXIME SODIUM
     Indication: PRODUCT USED FOR UNKNOWN INDICATION
  3. ZECLAR [Suspect]
     Active Substance: CLARITHROMYCIN
     Indication: INFECTION PROPHYLAXIS
     Dosage: UNK, 0,5 G, POUDRE POUR SOLUTION POUR PERFUSION
     Route: 042
     Dates: start: 20180320, end: 20180320

REACTIONS (3)
  - Phlebitis [Unknown]
  - Inflammation [Recovered/Resolved]
  - Infusion site extravasation [Recovered/Resolved]

NARRATIVE: CASE EVENT DATE: 20180320
